FAERS Safety Report 10659530 (Version 1)
Quarter: 2014Q4

REPORT INFORMATION
  Report Type: Spontaneous
  Country: US (occurrence: US)
  Receive Date: 20141217
  Receipt Date: 20141217
  Transmission Date: 20150529
  Serious: Yes (Other)
  Sender: FDA-Public Use
  Company Number: US-ABBVIE-14P-163-1319972-00

PATIENT
  Age: 10 Year
  Sex: Female

DRUGS (1)
  1. LUPRON DEPOT-PED [Suspect]
     Active Substance: LEUPROLIDE ACETATE
     Indication: BREAST ENLARGEMENT
     Dosage: UNKNOWN
     Route: 065

REACTIONS (3)
  - Breast enlargement [Not Recovered/Not Resolved]
  - Haemorrhage [Unknown]
  - Breast mass [Not Recovered/Not Resolved]
